FAERS Safety Report 8557069-2 (Version None)
Quarter: 2012Q3

REPORT INFORMATION
  Report Type: 
  Country: None (occurrence: None)
  Receive Date: 20120801
  Receipt Date: 20120715
  Transmission Date: 20120928
  Serious: Yes (Other)
  Sender: FDA-Public Use
  Company Number: DE-ROCHE-1091227

PATIENT
  Sex: Female

DRUGS (14)
  1. AVASTIN [Suspect]
     Indication: NON-SMALL CELL LUNG CANCER METASTATIC
     Dates: start: 20071101, end: 20080401
  2. VINORELBINE [Concomitant]
     Indication: NON-SMALL CELL LUNG CANCER METASTATIC
     Dates: start: 20071101, end: 20080401
  3. ACTIQ [Concomitant]
     Indication: PAIN
  4. AVASTIN [Suspect]
     Dates: start: 20100301
  5. GRANISETRON [Concomitant]
     Indication: PROPHYLAXIS OF NAUSEA AND VOMITING
  6. ZOMETA [Concomitant]
     Indication: METASTASES TO BONE
  7. GEMCITABINE HYDROCHLORIDE [Suspect]
     Indication: NON-SMALL CELL LUNG CANCER METASTATIC
     Dates: start: 20100301, end: 20100501
  8. METOCLOPRAMIDE [Concomitant]
     Indication: PROPHYLAXIS OF NAUSEA AND VOMITING
     Route: 048
  9. FENTANYL CITRATE [Concomitant]
     Indication: PAIN
     Route: 062
  10. CARBOPLATIN [Suspect]
     Indication: NON-SMALL CELL LUNG CANCER METASTATIC
     Dates: start: 20100301, end: 20100501
  11. AVASTIN [Suspect]
  12. DEXAMETHASONE SODIUM PHOSPHATE [Concomitant]
     Indication: PROPHYLAXIS OF NAUSEA AND VOMITING
  13. DIAZEPAM [Concomitant]
  14. CISPLATIN [Concomitant]
     Indication: NON-SMALL CELL LUNG CANCER METASTATIC
     Dates: start: 20071101, end: 20080401

REACTIONS (3)
  - NEOPLASM MALIGNANT [None]
  - IMMOBILE [None]
  - GENERAL PHYSICAL HEALTH DETERIORATION [None]
